FAERS Safety Report 12593994 (Version 2)
Quarter: 2016Q3

REPORT INFORMATION
  Report Type: Spontaneous
  Country: US (occurrence: US)
  Receive Date: 20160726
  Receipt Date: 20160929
  Transmission Date: 20161109
  Serious: Yes (Disabling)
  Sender: FDA-Public Use
  Company Number: US-US WORLDMEDS, LLC-USW201606-000477

PATIENT
  Sex: Female

DRUGS (1)
  1. NADOLOL. [Suspect]
     Active Substance: NADOLOL
     Indication: HYPERTENSION

REACTIONS (4)
  - Hypertension [Unknown]
  - Hypersensitivity [Unknown]
  - Bedridden [Unknown]
  - Drug ineffective [Unknown]
